FAERS Safety Report 19826480 (Version 2)
Quarter: 2021Q4

REPORT INFORMATION
  Report Type: Other
  Country: US (occurrence: US)
  Receive Date: 20210914
  Receipt Date: 20211012
  Transmission Date: 20220303
  Serious: No
  Sender: FDA-Public Use
  Company Number: US-NEUROCRINE BIOSCIENCES INC.-2021NBI04936

PATIENT

DRUGS (5)
  1. INGREZZA [Suspect]
     Active Substance: VALBENAZINE
     Indication: Tardive dyskinesia
     Dosage: 80 MILLIGRAM, QD
     Route: 048
     Dates: start: 20210714
  2. ADDERALL [Suspect]
     Active Substance: AMPHETAMINE ASPARTATE\AMPHETAMINE SULFATE\DEXTROAMPHETAMINE SACCHARATE\DEXTROAMPHETAMINE SULFATE
     Dosage: UNK
  3. ESCITALOPRAM [Concomitant]
     Active Substance: ESCITALOPRAM OXALATE
     Indication: Anxiety
     Dosage: 10 MILLIGRAMS, QD ONCE IN MORNING
     Route: 048
  4. SYNTHROID [Concomitant]
     Active Substance: LEVOTHYROXINE SODIUM
     Indication: Hypothyroidism
     Dosage: 100 UNK, QD
     Route: 048
  5. MELATONIN [Concomitant]
     Active Substance: MELATONIN
     Indication: Insomnia
     Dosage: 5 UNK QHS AT BEDTIME
     Route: 048

REACTIONS (5)
  - Therapeutic response unexpected [Unknown]
  - Akathisia [Not Recovered/Not Resolved]
  - Anxiety [Recovering/Resolving]
  - Vomiting [Unknown]
  - Insomnia [Unknown]

NARRATIVE: CASE EVENT DATE: 20210101
